FAERS Safety Report 10868824 (Version 1)
Quarter: 2015Q1

REPORT INFORMATION
  Report Type: Spontaneous
  Country: None (occurrence: US)
  Receive Date: 20150225
  Receipt Date: 20150225
  Transmission Date: 20150721
  Serious: No
  Sender: FDA-Public Use
  Company Number: US-MYLANLABS-2014SP005597

PATIENT
  Sex: Female

DRUGS (13)
  1. METOPROLOL SUCCINATE. [Concomitant]
     Active Substance: METOPROLOL SUCCINATE
  2. DOXERCALCIFEROL. [Concomitant]
     Active Substance: DOXERCALCIFEROL
  3. LORATADINE. [Concomitant]
     Active Substance: LORATADINE
  4. VANCOMYCIN [Suspect]
     Active Substance: VANCOMYCIN
  5. FOLIC ACID. [Concomitant]
     Active Substance: FOLIC ACID
  6. NEPHRONEX [Concomitant]
  7. NIACINAMIDE [Concomitant]
     Active Substance: NIACINAMIDE
  8. RENVELA [Concomitant]
     Active Substance: SEVELAMER CARBONATE
  9. EPOGEN [Concomitant]
     Active Substance: ERYTHROPOIETIN
  10. VITAMIN D3 [Concomitant]
     Active Substance: CHOLECALCIFEROL
  11. REVATIO [Concomitant]
     Active Substance: SILDENAFIL CITRATE
     Route: 048
  12. POLYETHYLENE GLYCOL [Concomitant]
     Active Substance: POLYETHYLENE GLYCOLS
  13. SILDENAFIL CITRATE. [Concomitant]
     Active Substance: SILDENAFIL CITRATE

REACTIONS (2)
  - Drug hypersensitivity [Unknown]
  - Swelling face [Unknown]
